FAERS Safety Report 5167095-1 (Version None)
Quarter: 2006Q4

REPORT INFORMATION
  Report Type: 
  Country: None (occurrence: None)
  Receive Date: 20061207
  Receipt Date: 20061206
  Transmission Date: 20070319
  Serious: Yes (Death)
  Sender: FDA-Public Use
  Company Number: US-GLAXOSMITHKLINE-A0630618A

PATIENT
  Age: 39 Year
  Sex: Male

DRUGS (3)
  1. PAXIL [Suspect]
     Indication: DEPRESSION
     Route: 065
  2. ATIVAN [Concomitant]
  3. PROZAC [Concomitant]

REACTIONS (4)
  - COMPLETED SUICIDE [None]
  - HALLUCINATION, AUDITORY [None]
  - HOMICIDE [None]
  - THINKING ABNORMAL [None]
